FAERS Safety Report 11374632 (Version 1)
Quarter: 2015Q3

REPORT INFORMATION
  Report Type: Spontaneous
  Country: US (occurrence: None)
  Receive Date: 20150812
  Receipt Date: 20150812
  Transmission Date: 20151125
  Serious: Yes (Hospitalization)
  Sender: FDA-Public Use
  Company Number: None

PATIENT
  Age: 66 Year
  Sex: Male
  Weight: 106.4 kg

DRUGS (1)
  1. WARFARIN [Suspect]
     Active Substance: WARFARIN
     Dosage: MG  PO
     Route: 048
     Dates: start: 20150422

REACTIONS (4)
  - International normalised ratio increased [None]
  - Basal ganglia stroke [None]
  - Hypertension [None]
  - Haemorrhage intracranial [None]

NARRATIVE: CASE EVENT DATE: 20150422
